FAERS Safety Report 5865898-9 (Version None)
Quarter: 2008Q3

REPORT INFORMATION
  Report Type: 
  Country: None (occurrence: None)
  Receive Date: 20080829
  Receipt Date: 20080826
  Transmission Date: 20090109
  Serious: Yes (Other)
  Sender: FDA-Public Use
  Company Number: US-ABBOTT-08P-163-0471817-00

PATIENT
  Sex: Female

DRUGS (2)
  1. HUMIRA [Suspect]
     Indication: PSORIASIS
     Route: 058
     Dates: start: 20071220
  2. LEVOTHYROXINE [Concomitant]
     Indication: THYROID DISORDER
     Route: 048

REACTIONS (6)
  - ASTHENIA [None]
  - GLOMERULAR FILTRATION RATE ABNORMAL [None]
  - HERPES VIRUS INFECTION [None]
  - RENAL FAILURE [None]
  - THYROID FUNCTION TEST ABNORMAL [None]
  - VISUAL IMPAIRMENT [None]
